FAERS Safety Report 26130362 (Version 1)
Quarter: 2025Q4

REPORT INFORMATION
  Report Type: Spontaneous
  Country: US (occurrence: None)
  Receive Date: 20251205
  Receipt Date: 20251205
  Transmission Date: 20260117
  Serious: Yes (Other)
  Sender: FDA-CTU
  Company Number: None

PATIENT
  Age: 29 Year
  Sex: Female
  Weight: 63 kg

DRUGS (1)
  1. NADH [Suspect]
     Active Substance: NADH
     Indication: Pain
     Dosage: OTHER FREQUENCY : 3X A WEEK;
     Route: 058
     Dates: start: 20250815, end: 20250918

REACTIONS (2)
  - Heart rate increased [None]
  - Blood glucose decreased [None]

NARRATIVE: CASE EVENT DATE: 20250918
